FAERS Safety Report 8633999 (Version 3)
Quarter: 2014Q2

REPORT INFORMATION
  Report Type: Spontaneous
  Country: US (occurrence: US)
  Receive Date: 20120626
  Receipt Date: 20140423
  Transmission Date: 20141212
  Serious: Yes (Hospitalization, Disabling, Other)
  Sender: FDA-Public Use
  Company Number: US-ASTRAZENECA-2012SE35806

PATIENT
  Age: 594 Month
  Sex: Female
  Weight: 95.3 kg

DRUGS (18)
  1. NEXIUM [Suspect]
     Indication: GASTROOESOPHAGEAL REFLUX DISEASE
     Dosage: ONE PER DAY
     Route: 048
     Dates: start: 2003
  2. NEXIUM [Suspect]
     Indication: DYSPEPSIA
     Dosage: ONE PER DAY
     Route: 048
     Dates: start: 2003
  3. NEXIUM [Suspect]
     Indication: GASTROOESOPHAGEAL REFLUX DISEASE
     Route: 048
     Dates: start: 20060622
  4. NEXIUM [Suspect]
     Indication: DYSPEPSIA
     Route: 048
     Dates: start: 20060622
  5. PREVACID [Concomitant]
     Dates: start: 1993, end: 2003
  6. ZEGERID [Concomitant]
     Dates: start: 1993, end: 2003
  7. TAGAMET [Concomitant]
     Dosage: FOR 1 YEAR
     Dates: start: 1992
  8. ZANTAC [Concomitant]
     Dosage: PRN
     Dates: start: 1993, end: 2003
  9. PEPCID [Concomitant]
     Dosage: PRN
  10. TUMS [Concomitant]
     Dates: start: 1976, end: 2005
  11. ROLAIDS [Concomitant]
     Dates: start: 1976, end: 2005
  12. ALKA-SELTZER [Concomitant]
     Indication: ABDOMINAL DISTENSION
     Dosage: A FEW TIMES A MONTH
     Dates: start: 2005, end: 2006
  13. ALKA-SELTZER [Concomitant]
     Indication: FLATULENCE
     Dosage: A FEW TIMES A MONTH
     Dates: start: 2005, end: 2006
  14. ASPIRIN [Concomitant]
  15. VITAMIN B12 [Concomitant]
  16. MULTIVITAMINS [Concomitant]
  17. ACIPHEX [Concomitant]
  18. OXYCODONE/APAP [Concomitant]
     Dosage: 5/500 MG
     Dates: start: 20070719

REACTIONS (29)
  - Back disorder [Unknown]
  - Intervertebral disc protrusion [Unknown]
  - Spinal column stenosis [Unknown]
  - Balance disorder [Unknown]
  - Concussion [Unknown]
  - Nerve injury [Unknown]
  - Wrist fracture [Unknown]
  - Pelvic infection [Unknown]
  - Arthropathy [Unknown]
  - Skin cancer [Unknown]
  - Fall [Unknown]
  - Upper limb fracture [Unknown]
  - Radius fracture [Unknown]
  - Scapula fracture [Unknown]
  - Osteoporosis [Unknown]
  - Ankle fracture [Unknown]
  - Foot fracture [Unknown]
  - Arthritis [Unknown]
  - Vitamin D deficiency [Unknown]
  - Intervertebral disc degeneration [Unknown]
  - Attention deficit/hyperactivity disorder [Unknown]
  - Anxiety [Unknown]
  - Sleep apnoea syndrome [Unknown]
  - Head injury [Unknown]
  - Vitreous floaters [Unknown]
  - Depression [Unknown]
  - Disturbance in attention [Unknown]
  - Somnolence [Unknown]
  - Memory impairment [Unknown]
